FAERS Safety Report 8511470 (Version 4)
Quarter: 2014Q1

REPORT INFORMATION
  Report Type: Spontaneous
  Country: US (occurrence: US)
  Receive Date: 20120413
  Receipt Date: 20140113
  Transmission Date: 20141002
  Serious: Yes (Hospitalization, Disabling)
  Sender: FDA-Public Use
  Company Number: US-ASTRAZENECA-2011SE32278

PATIENT
  Age: 56 Year
  Sex: Female

DRUGS (11)
  1. NEXIUM [Suspect]
     Route: 048
     Dates: start: 2008
  2. NEXIUM [Suspect]
     Route: 048
     Dates: start: 20090502
  3. NEXIUM [Suspect]
     Route: 048
     Dates: start: 20101123
  4. PEPTO-BISMOL OVER THE COUNTER [Concomitant]
  5. ALKA-SELTZER OVER THE COUNTER [Concomitant]
  6. ARTHROTEC [Concomitant]
     Route: 048
     Dates: start: 20101210
  7. NIFEDICAL XL [Concomitant]
     Route: 048
     Dates: start: 20101123
  8. DIOVAN HCT [Concomitant]
     Dosage: 320/25 MG DAILY
     Route: 048
     Dates: start: 20101123
  9. METOPROLOL TARTRATE [Concomitant]
     Route: 048
     Dates: start: 20101123
  10. CLONIDINE [Concomitant]
     Route: 048
     Dates: start: 20101123
  11. SIMVASTATIN [Concomitant]
     Route: 048
     Dates: start: 20101123

REACTIONS (9)
  - Osteonecrosis [Unknown]
  - Blood pressure inadequately controlled [Unknown]
  - Osteoporosis [Unknown]
  - Multiple fractures [Unknown]
  - Arthritis [Unknown]
  - Bone disorder [Unknown]
  - Diabetes mellitus [Unknown]
  - Osteoarthritis [Unknown]
  - Depression [Unknown]
